FAERS Safety Report 18208996 (Version 1)
Quarter: 2020Q3

REPORT INFORMATION
  Report Type: Spontaneous
  Country: CN (occurrence: CN)
  Receive Date: 20200828
  Receipt Date: 20200828
  Transmission Date: 20201103
  Serious: Yes (Other)
  Sender: FDA-Public Use
  Company Number: CN-ROCHE-2667563

PATIENT
  Sex: Male

DRUGS (3)
  1. TECENTRIQ [Suspect]
     Active Substance: ATEZOLIZUMAB
     Indication: LUNG NEOPLASM MALIGNANT
     Route: 065
  2. THYMOPOLYPEPTIDES [Concomitant]
  3. ZADAXIN [Concomitant]
     Active Substance: THYMALFASIN

REACTIONS (2)
  - Myocardial necrosis marker increased [Recovering/Resolving]
  - Palpitations [Recovering/Resolving]
